FAERS Safety Report 14036424 (Version 2)
Quarter: 2022Q2

REPORT INFORMATION
  Report Type: Spontaneous
  Country: US (occurrence: None)
  Receive Date: 20171003
  Receipt Date: 20220504
  Transmission Date: 20220721
  Serious: No
  Sender: FDA-Public Use
  Company Number: US-ROCHE-1993773

PATIENT
  Age: 46 Year
  Sex: Male
  Weight: 102.15 kg

DRUGS (4)
  1. OCREVUS [Suspect]
     Active Substance: OCRELIZUMAB
     Indication: Multiple sclerosis
     Dosage: ON DAY 15
     Route: 042
     Dates: start: 201709
  2. KLONOPIN [Concomitant]
     Active Substance: CLONAZEPAM
     Route: 065
  3. CYMBALTA [Concomitant]
     Active Substance: DULOXETINE HYDROCHLORIDE
     Indication: Depression
     Route: 048
  4. CYMBALTA [Concomitant]
     Active Substance: DULOXETINE HYDROCHLORIDE
     Indication: Anxiety

REACTIONS (8)
  - Hyperhidrosis [Unknown]
  - Headache [Unknown]
  - Temperature regulation disorder [Unknown]
  - Insomnia [Unknown]
  - Anxiety [Unknown]
  - Cardiac disorder [Unknown]
  - Fatigue [Unknown]
  - Ophthalmic migraine [Not Recovered/Not Resolved]

NARRATIVE: CASE EVENT DATE: 20210701
